FAERS Safety Report 10178724 (Version 3)
Quarter: 2014Q3

REPORT INFORMATION
  Report Type: Report from Study
  Country: US (occurrence: US)
  Receive Date: 20140519
  Receipt Date: 20140728
  Transmission Date: 20150326
  Serious: Yes (Other)
  Sender: FDA-Public Use
  Company Number: US-BIOGENIDEC-2014BI045950

PATIENT
  Sex: Male

DRUGS (2)
  1. AVONEX [Suspect]
     Active Substance: INTERFERON BETA-1A
     Indication: MULTIPLE SCLEROSIS
     Route: 030
     Dates: start: 19990929, end: 199912
  2. AVONEX [Suspect]
     Active Substance: INTERFERON BETA-1A
     Indication: MULTIPLE SCLEROSIS
     Route: 030
     Dates: start: 2005

REACTIONS (17)
  - Depression [Recovered/Resolved]
  - Bone pain [Unknown]
  - Adverse drug reaction [Recovered/Resolved]
  - Arrhythmia [Not Recovered/Not Resolved]
  - Lymphocytic leukaemia [Recovered/Resolved]
  - Muscle disorder [Not Recovered/Not Resolved]
  - Mental disorder [Unknown]
  - Cataract [Unknown]
  - Genital disorder male [Unknown]
  - Herpes zoster [Unknown]
  - Fatigue [Not Recovered/Not Resolved]
  - Acromegaly [Not Recovered/Not Resolved]
  - Night sweats [Recovered/Resolved]
  - Atrial fibrillation [Not Recovered/Not Resolved]
  - Retinal detachment [Recovered/Resolved]
  - Hypotonia [Not Recovered/Not Resolved]
  - Hypoaesthesia [Not Recovered/Not Resolved]

NARRATIVE: CASE EVENT DATE: 2004
